FAERS Safety Report 7411492-8 (Version None)
Quarter: 2011Q2

REPORT INFORMATION
  Report Type: 
  Country: None (occurrence: None)
  Receive Date: 20110413
  Receipt Date: 20110401
  Transmission Date: 20111010
  Serious: Yes (Other)
  Sender: FDA-Public Use
  Company Number: PHHY2011CO18010

PATIENT
  Sex: Female

DRUGS (1)
  1. ACLASTA [Suspect]
     Indication: OSTEOPOROSIS
     Dosage: 5 MG, UNK
     Route: 042
     Dates: start: 20091217

REACTIONS (7)
  - FEELING ABNORMAL [None]
  - SLEEP DISORDER [None]
  - DECREASED APPETITE [None]
  - DIZZINESS [None]
  - MUSCULAR WEAKNESS [None]
  - DEPRESSION [None]
  - APATHY [None]
